FAERS Safety Report 9860055 (Version 1)
Quarter: 2014Q1

REPORT INFORMATION
  Report Type: Spontaneous
  Country: PT (occurrence: PT)
  Receive Date: 20140131
  Receipt Date: 20140131
  Transmission Date: 20141002
  Serious: Yes (Other)
  Sender: FDA-Public Use
  Company Number: PT-ROCHE-1342188

PATIENT
  Sex: Female

DRUGS (3)
  1. AVASTIN [Suspect]
     Indication: OVARIAN CANCER
     Dosage: 7.5 MG/KG BODY WEIGHT
     Route: 042
     Dates: start: 201311
  2. PACLITAXEL [Concomitant]
     Indication: OVARIAN CANCER
     Route: 065
  3. CARBOPLATIN [Concomitant]
     Indication: OVARIAN CANCER
     Dosage: AUC 4-6
     Route: 065

REACTIONS (1)
  - Aphonia [Unknown]
